FAERS Safety Report 13948345 (Version 1)
Quarter: 2017Q3

REPORT INFORMATION
  Report Type: Spontaneous
  Country: US (occurrence: US)
  Receive Date: 20170908
  Receipt Date: 20170908
  Transmission Date: 20171128
  Serious: Yes (Other)
  Sender: FDA-Public Use
  Company Number: US-TARO PHARMACEUTICALS USA.,INC-2017SUN00306

PATIENT
  Sex: Male

DRUGS (1)
  1. FLUOROURACIL. [Suspect]
     Active Substance: FLUOROURACIL
     Indication: ACTINIC KERATOSIS
     Dosage: UNK, BID (MASSAGING ONTO THE SKIN IN THE MORNING AFTER SHOWERING AND ONTO DRY SKIN EACH EVENING)
     Route: 061

REACTIONS (2)
  - Application site pain [Recovered/Resolved]
  - Cerebellar syndrome [Recovered/Resolved]
